FAERS Safety Report 6582870-4 (Version None)
Quarter: 2010Q1

REPORT INFORMATION
  Report Type: 
  Country: None (occurrence: None)
  Receive Date: 20100203
  Receipt Date: 20100122
  Transmission Date: 20100710
  Serious: Yes (Disabling)
  Sender: FDA-Public Use
  Company Number: 487706

PATIENT
  Sex: Female

DRUGS (1)
  1. BUPIVACAINE HCL [Suspect]
     Indication: ANALGESIC THERAPY
     Dosage: CONTINUOUS FOR ^UP TO 48 HOURS OR MORE^, INJECTION
     Dates: start: 20040301

REACTIONS (9)
  - ANXIETY [None]
  - ARTHROPATHY [None]
  - CARTILAGE INJURY [None]
  - CHONDROLYSIS [None]
  - DISCOMFORT [None]
  - EMOTIONAL DISTRESS [None]
  - MUSCULOSKELETAL DISORDER [None]
  - OFF LABEL USE [None]
  - PAIN [None]
